FAERS Safety Report 25799009 (Version 2)
Quarter: 2025Q3

REPORT INFORMATION
  Report Type: Spontaneous
  Country: US (occurrence: US)
  Receive Date: 20250913
  Receipt Date: 20250920
  Transmission Date: 20251021
  Serious: Yes (Disabling, Other)
  Sender: ABBVIE
  Company Number: US-ABBVIE-6455376

PATIENT
  Age: 53 Year
  Sex: Female

DRUGS (3)
  1. BOTOX [Suspect]
     Active Substance: ONABOTULINUMTOXINA
     Indication: Vertigo
     Route: 030
     Dates: start: 2023, end: 2023
  2. BOTOX [Suspect]
     Active Substance: ONABOTULINUMTOXINA
     Indication: Vertigo
     Route: 030
     Dates: start: 20250916, end: 20250916
  3. BOTOX [Suspect]
     Active Substance: ONABOTULINUMTOXINA
     Indication: Vertigo
     Route: 030

REACTIONS (17)
  - Blindness [Not Recovered/Not Resolved]
  - Chest pain [Not Recovered/Not Resolved]
  - Blepharospasm [Unknown]
  - Vision blurred [Not Recovered/Not Resolved]
  - Photophobia [Unknown]
  - Off label use [Unknown]
  - Nausea [Not Recovered/Not Resolved]
  - Therapeutic product effect decreased [Unknown]
  - Injection site pain [Unknown]
  - Migraine [Unknown]
  - Ear pain [Not Recovered/Not Resolved]
  - Visual impairment [Unknown]
  - Ear congestion [Unknown]
  - Dyspnoea [Not Recovered/Not Resolved]
  - Wrong technique in product usage process [Not Recovered/Not Resolved]
  - Nervous system disorder [Unknown]
  - Dizziness [Not Recovered/Not Resolved]

NARRATIVE: CASE EVENT DATE: 20230101
